FAERS Safety Report 25682845 (Version 2)
Quarter: 2025Q3

REPORT INFORMATION
  Report Type: Spontaneous
  Country: US (occurrence: US)
  Receive Date: 20250814
  Receipt Date: 20250815
  Transmission Date: 20251020
  Serious: No
  Sender: PFIZER
  Company Number: US-PFIZER INC-202500162176

PATIENT
  Sex: Male

DRUGS (2)
  1. BACTERIOSTATIC WATER [Suspect]
     Active Substance: WATER
  2. SERMORELIN [Suspect]
     Active Substance: SERMORELIN

REACTIONS (4)
  - Erythema [Unknown]
  - Swelling [Unknown]
  - Pruritus [Unknown]
  - Contusion [Unknown]
